FAERS Safety Report 7618819-2 (Version None)
Quarter: 2011Q3

REPORT INFORMATION
  Report Type: 
  Country: None (occurrence: None)
  Receive Date: 20110718
  Receipt Date: 20110712
  Transmission Date: 20111222
  Serious: Yes (Congenital Anomaly, Other)
  Sender: FDA-Public Use
  Company Number: US-PFIZER INC-2007095378

PATIENT
  Sex: Female

DRUGS (8)
  1. PROZAC [Concomitant]
     Route: 064
  2. PAXIL [Concomitant]
     Route: 064
     Dates: start: 20011113, end: 20011126
  3. MORPHINE [Concomitant]
     Route: 064
  4. ZOLOFT [Suspect]
     Indication: DRUG INTOLERANCE
  5. PRENATAL VITAMINS [Concomitant]
     Route: 064
  6. ZOLOFT [Suspect]
     Indication: DEPRESSION
  7. ZOLOFT [Suspect]
     Indication: TENSION HEADACHE
     Route: 064
     Dates: start: 20010101
  8. ZOLOFT [Suspect]
     Indication: INSOMNIA

REACTIONS (3)
  - MATERNAL EXPOSURE DURING PREGNANCY [None]
  - POST-TRAUMATIC STRESS DISORDER [None]
  - VENTRICULAR SEPTAL DEFECT [None]
